FAERS Safety Report 8345798-5 (Version None)
Quarter: 2012Q2

REPORT INFORMATION
  Report Type: 
  Country: None (occurrence: None)
  Receive Date: 20120509
  Receipt Date: 20120505
  Transmission Date: 20120825
  Serious: Yes (Other)
  Sender: FDA-Public Use
  Company Number: US-AMGEN-USASP2012028608

PATIENT
  Sex: Female

DRUGS (2)
  1. ANTINEOPLASTIC AGENTS [Concomitant]
     Indication: OVARIAN CANCER
  2. NEULASTA [Suspect]
     Indication: CHEMOTHERAPY
     Dosage: UNK
     Dates: start: 20120401

REACTIONS (1)
  - DYSPNOEA [None]
